FAERS Safety Report 10207971 (Version 1)
Quarter: 2014Q2

REPORT INFORMATION
  Report Type: Report from Study
  Country: US (occurrence: US)
  Receive Date: 20140530
  Receipt Date: 20140530
  Transmission Date: 20141212
  Serious: Yes (Other)
  Sender: FDA-Public Use
  Company Number: US-SA-2014SA067273

PATIENT
  Age: 51 Year
  Sex: Female

DRUGS (7)
  1. LANTUS SOLOSTAR [Suspect]
     Indication: TYPE 2 DIABETES MELLITUS
     Dosage: PRODUCT START DATE ~2 YEARS; PRESCRIBED DOSE 80 UNITS AT NIGHT (TO MAKE SUPPLY LAST, USING 70 U
     Route: 065
     Dates: start: 2012
  2. LANTUS SOLOSTAR [Suspect]
     Indication: TYPE 2 DIABETES MELLITUS
     Dosage: PRODUCT START DATE ~2 YEARS; PRESCRIBED DOSE 80 UNITS AT NIGHT (TO MAKE SUPPLY LAST, USING 70 U
     Route: 065
     Dates: start: 2012
  3. SOLOSTAR [Concomitant]
  4. SOLOSTAR [Concomitant]
  5. GLYBURIDE [Concomitant]
  6. METFORMIN [Concomitant]
  7. NOVOLOG [Concomitant]

REACTIONS (8)
  - Carpal tunnel decompression [Not Recovered/Not Resolved]
  - Blood glucose increased [Not Recovered/Not Resolved]
  - Drug administration error [Unknown]
  - Sluggishness [Not Recovered/Not Resolved]
  - Fatigue [Not Recovered/Not Resolved]
  - Tremor [Not Recovered/Not Resolved]
  - Nerve injury [Not Recovered/Not Resolved]
  - Malaise [Unknown]
